FAERS Safety Report 7700508-7 (Version None)
Quarter: 2011Q3

REPORT INFORMATION
  Report Type: 
  Country: None (occurrence: None)
  Receive Date: 20110822
  Receipt Date: 20110812
  Transmission Date: 20111222
  Serious: Yes (Hospitalization)
  Sender: FDA-Public Use
  Company Number: CZ-JNJFOC-20110806966

PATIENT
  Sex: Female

DRUGS (5)
  1. METHOTREXATE [Concomitant]
     Indication: PROPHYLAXIS
     Dates: end: 20110101
  2. SULFASALAZINE [Concomitant]
     Indication: ANKYLOSING SPONDYLITIS
     Dates: start: 20110112
  3. REMICADE [Suspect]
     Indication: ANKYLOSING SPONDYLITIS
     Route: 042
  4. COXTRAL [Concomitant]
     Indication: PAIN
  5. REMICADE [Suspect]
     Route: 042
     Dates: start: 20091111

REACTIONS (3)
  - ESCHERICHIA URINARY TRACT INFECTION [None]
  - STRANGURY [None]
  - SEPSIS [None]
